FAERS Safety Report 11679364 (Version 2)
Quarter: 2015Q4

REPORT INFORMATION
  Report Type: Spontaneous
  Country: US (occurrence: US)
  Receive Date: 20151027
  Receipt Date: 20151104
  Transmission Date: 20160304
  Serious: No
  Sender: FDA-Public Use
  Company Number: US-ELI_LILLY_AND_COMPANY-US201011003792

PATIENT
  Age: 50 Year
  Sex: Female

DRUGS (2)
  1. OSCAL [Concomitant]
     Active Substance: CALCIUM CARBONATE
     Dosage: UNK, 2/D
  2. FORTEO [Suspect]
     Active Substance: TERIPARATIDE
     Indication: OSTEOPOROSIS
     Dosage: 20 UG, DAILY (1/D)
     Route: 065
     Dates: start: 20101028

REACTIONS (2)
  - Adverse reaction [Unknown]
  - Muscle spasms [Unknown]
